FAERS Safety Report 8078387-0 (Version None)
Quarter: 2012Q1

REPORT INFORMATION
  Report Type: 
  Country: None (occurrence: None)
  Receive Date: 20120123
  Receipt Date: 20120109
  Transmission Date: 20120608
  Serious: Yes (Disabling, Other)
  Sender: FDA-Public Use
  Company Number: 2012MA000558

PATIENT
  Age: 68 Year
  Sex: Female

DRUGS (4)
  1. LIDOCAINE HCL [Suspect]
     Indication: BLEPHAROPLASTY
     Dosage: 50: 50 2%; XL; INTRACAMERAL
     Route: 019
  2. SODIUM BICARBONATE [Suspect]
     Indication: BLEPHAROPLASTY
     Dosage: ; X1; INTRACAMERAL
  3. EPINEPHRINE [Suspect]
     Indication: BLEPHAROPLASTY
     Dosage: 1 : 100, 000; XL; INTRACAMERAL
  4. BUPIVACAINE HCL [Suspect]
     Indication: BLEPHAROPLASTY
     Dosage: 0.5%, X1; INTRACAMERAL

REACTIONS (9)
  - IRIS DISORDER [None]
  - VISUAL ACUITY REDUCED [None]
  - CORNEAL OPACITY [None]
  - TOXICITY TO VARIOUS AGENTS [None]
  - CORNEAL PERFORATION [None]
  - CORNEAL OEDEMA [None]
  - INFLAMMATION [None]
  - ANGLE CLOSURE GLAUCOMA [None]
  - ANAESTHETIC COMPLICATION [None]
